FAERS Safety Report 7375488-7 (Version None)
Quarter: 2011Q1

REPORT INFORMATION
  Report Type: 
  Country: None (occurrence: None)
  Receive Date: 20110325
  Receipt Date: 20110316
  Transmission Date: 20110831
  Serious: Yes (Death, Hospitalization, Other)
  Sender: FDA-Public Use
  Company Number: BR-SANOFI-AVENTIS-2011SA016521

PATIENT
  Age: 75 Year
  Sex: Male

DRUGS (6)
  1. RANITIDINE [Concomitant]
  2. CALCIUM [Concomitant]
  3. OPTIPEN [Suspect]
  4. ALL OTHER THERAPEUTIC PRODUCTS [Concomitant]
  5. TRAMADOL HCL [Suspect]
     Dosage: ABOUT 3ML
     Dates: start: 20050101, end: 20050101
  6. LANTUS [Suspect]
     Indication: TYPE 2 DIABETES MELLITUS
     Route: 058

REACTIONS (5)
  - CARDIAC ARREST [None]
  - LUNG INFECTION [None]
  - CONVULSION [None]
  - INFLUENZA [None]
  - PAIN IN EXTREMITY [None]
